FAERS Safety Report 8701467 (Version 2)
Quarter: 2012Q4

REPORT INFORMATION
  Report Type: Report from Study
  Country: US (occurrence: US)
  Receive Date: 20120802
  Receipt Date: 20121010
  Transmission Date: 20130627
  Serious: Yes (Other)
  Sender: FDA-Public Use
  Company Number: US-ABBOTT-12P-163-0961536-00

PATIENT
  Age: 81 None
  Sex: Male
  Weight: 83.99 kg

DRUGS (6)
  1. LUPRON DEPOT 30 MG [Suspect]
     Indication: PROSTATE CANCER
     Route: 030
     Dates: start: 20120521
  2. CARVEDILOL [Concomitant]
     Indication: MYOCARDIAL INFARCTION
  3. LIPITOR [Concomitant]
     Indication: CARDIAC DISORDER
  4. BABY ASPIRIN [Concomitant]
     Indication: CARDIAC DISORDER
  5. FLOMAX [Concomitant]
     Indication: PROSTATE CANCER
  6. OMEPRAZOLE [Concomitant]
     Indication: ABDOMINAL PAIN

REACTIONS (7)
  - Hot flush [Not Recovered/Not Resolved]
  - Pain [Not Recovered/Not Resolved]
  - Metastases to bone [Not Recovered/Not Resolved]
  - Pain [Not Recovered/Not Resolved]
  - Fall [Recovered/Resolved]
  - Back pain [Not Recovered/Not Resolved]
  - Contusion [Recovering/Resolving]
